FAERS Safety Report 17855947 (Version 1)
Quarter: 2020Q2

REPORT INFORMATION
  Report Type: Spontaneous
  Country: US (occurrence: US)
  Receive Date: 20200603
  Receipt Date: 20200603
  Transmission Date: 20200714
  Serious: No
  Sender: FDA-Public Use
  Company Number: US-BTG-201900231

PATIENT
  Sex: Male
  Weight: 101.8 kg

DRUGS (4)
  1. VORAXAZE [Suspect]
     Active Substance: GLUCARPIDASE
     Indication: TOXICITY TO VARIOUS AGENTS
     Dosage: 4 VIALS @ 22:00
     Route: 065
     Dates: start: 20191025
  2. LEUCOVORIN. [Suspect]
     Active Substance: LEUCOVORIN
     Indication: TOXICITY TO VARIOUS AGENTS
     Dosage: EVERY 3 HOURS. LAST DOSE @ 19:00
     Route: 065
     Dates: start: 20191025
  3. LEUCOVORIN. [Suspect]
     Active Substance: LEUCOVORIN
     Indication: TOXICITY TO VARIOUS AGENTS
     Dosage: AT 01:00
     Route: 065
     Dates: start: 20191026
  4. METHOTREXATE. [Suspect]
     Active Substance: METHOTREXATE
     Indication: ACUTE LYMPHOCYTIC LEUKAEMIA
     Route: 065

REACTIONS (5)
  - Laboratory test interference [Unknown]
  - Blood creatinine increased [Unknown]
  - Underdose [Unknown]
  - Therapy change [Unknown]
  - Product availability issue [Unknown]

NARRATIVE: CASE EVENT DATE: 20191028
